FAERS Safety Report 12478160 (Version 1)
Quarter: 2016Q2

REPORT INFORMATION
  Report Type: Spontaneous
  Country: AU (occurrence: AU)
  Receive Date: 20160617
  Receipt Date: 20160617
  Transmission Date: 20160815
  Serious: Yes (Hospitalization, Other)
  Sender: FDA-Public Use
  Company Number: AU-AMGEN-US143046

PATIENT
  Sex: Female

DRUGS (10)
  1. FOLATE SODIUM [Concomitant]
     Active Substance: FOLATE SODIUM
  2. SODIUM BICARBONATE. [Concomitant]
     Active Substance: SODIUM BICARBONATE
  3. METHYLDOPA. [Concomitant]
     Active Substance: METHYLDOPA
  4. AZATHIOPRINE. [Concomitant]
     Active Substance: AZATHIOPRINE
  5. BETAMETHASONE. [Concomitant]
     Active Substance: BETAMETHASONE
  6. PREDNISOLONE. [Concomitant]
     Active Substance: PREDNISOLONE
  7. ARANESP [Suspect]
     Active Substance: DARBEPOETIN ALFA
     Indication: RENAL TRANSPLANT
     Dosage: 30 MUG, QWK
  8. RANITIDINE. [Concomitant]
     Active Substance: RANITIDINE
  9. IRON [Concomitant]
     Active Substance: IRON
  10. LABETALOL [Concomitant]
     Active Substance: LABETALOL\LABETALOL HYDROCHLORIDE

REACTIONS (13)
  - Blood creatinine increased [Unknown]
  - Hypocalcaemia [Recovered/Resolved]
  - Vesicoureteric reflux [Recovered/Resolved]
  - Cryptorchism [Unknown]
  - Tuberculosis [Recovered/Resolved]
  - End stage renal disease [Unknown]
  - Neonatal respiratory distress syndrome [Recovered/Resolved]
  - Haemoglobin decreased [Recovered/Resolved]
  - Renal transplant [Recovered/Resolved]
  - Patent ductus arteriosus [Recovered/Resolved]
  - Herpes zoster [Recovered/Resolved]
  - Hypertension [Recovered/Resolved]
  - Jaundice [Recovered/Resolved]
